FAERS Safety Report 5241920-8 (Version None)
Quarter: 2007Q1

REPORT INFORMATION
  Report Type: 
  Country: None (occurrence: None)
  Receive Date: 20070220
  Receipt Date: 20070215
  Transmission Date: 20070707
  Serious: Yes (Other)
  Sender: FDA-Public Use
  Company Number: BE-SHR-BE-2007-004351

PATIENT

DRUGS (1)
  1. MAGNEVIST [Suspect]
     Dosage: 3 ADMINISTRATIONS RECENTLY

REACTIONS (1)
  - NEPHROGENIC FIBROSING DERMOPATHY [None]
